FAERS Safety Report 10022074 (Version 7)
Quarter: 2015Q3

REPORT INFORMATION
  Report Type: Spontaneous
  Country: US (occurrence: US)
  Receive Date: 20140319
  Receipt Date: 20150928
  Transmission Date: 20151125
  Serious: Yes (Other)
  Sender: FDA-Public Use
  Company Number: US-GLAXOSMITHKLINE-A1063889A

PATIENT
  Age: 50 Year
  Sex: Female
  Weight: 102.3 kg

DRUGS (5)
  1. POTIGA [Suspect]
     Active Substance: EZOGABINE
     Indication: SEIZURE
     Dosage: UNKNOWN DOSE
     Route: 048
     Dates: start: 20071109
  2. LAMICTAL [Concomitant]
     Active Substance: LAMOTRIGINE
     Indication: SEIZURE
     Route: 048
     Dates: start: 2001
  3. KEPPRA [Concomitant]
     Active Substance: LEVETIRACETAM
     Indication: SEIZURE
     Route: 048
     Dates: start: 2008
  4. KLONOPIN [Concomitant]
     Active Substance: CLONAZEPAM
     Indication: SEIZURE
     Route: 048
  5. POTIGA [Suspect]
     Active Substance: EZOGABINE
     Dates: start: 20071109

REACTIONS (4)
  - Toxicity to various agents [Unknown]
  - Maculopathy [Unknown]
  - Macular degeneration [Unknown]
  - Retinal pigment epitheliopathy [Unknown]

NARRATIVE: CASE EVENT DATE: 20131213
